FAERS Safety Report 6717619-5 (Version None)
Quarter: 2010Q2

REPORT INFORMATION
  Report Type: 
  Country: None (occurrence: None)
  Receive Date: 20100507
  Receipt Date: 20100507
  Transmission Date: 20101027
  Serious: No
  Sender: FDA-Public Use
  Company Number: None

PATIENT
  Age: 22 Year
  Sex: Female
  Weight: 64.4108 kg

DRUGS (2)
  1. LAMOTRIGINE [Suspect]
     Indication: BIPOLAR II DISORDER
     Dosage: 100 ONCE A DAY PO
     Route: 048
     Dates: start: 20100405, end: 20100505
  2. LAMOTRIGINE [Suspect]
     Dosage: 25 TWICE A DAY PO
     Route: 048
     Dates: start: 20100405, end: 20100505

REACTIONS (11)
  - COMPULSIVE SHOPPING [None]
  - DEPRESSION [None]
  - DRUG INEFFECTIVE [None]
  - EATING DISORDER [None]
  - FEELING ABNORMAL [None]
  - GAIT DISTURBANCE [None]
  - HYPOMANIA [None]
  - IMPAIRED WORK ABILITY [None]
  - INSOMNIA [None]
  - MEMORY IMPAIRMENT [None]
  - PRODUCT SUBSTITUTION ISSUE [None]
